FAERS Safety Report 6100710-4 (Version None)
Quarter: 2009Q1

REPORT INFORMATION
  Report Type: 
  Country: None (occurrence: None)
  Receive Date: 20090303
  Receipt Date: 20090218
  Transmission Date: 20090719
  Serious: Yes (Other)
  Sender: FDA-Public Use
  Company Number: PHHY2009GB01235

PATIENT
  Sex: Male

DRUGS (3)
  1. CLOZARIL [Suspect]
     Indication: SCHIZOPHRENIA
     Dosage: 500 MG
     Route: 048
     Dates: start: 20070321
  2. VALPROATE SODIUM [Concomitant]
     Indication: MOOD ALTERED
     Dosage: 700 MG
     Route: 048
  3. HYOSCINE [Concomitant]
     Indication: SALIVARY HYPERSECRETION
     Dosage: 600 MG
     Route: 048

REACTIONS (7)
  - AMNESIA [None]
  - CONFUSIONAL STATE [None]
  - DIARRHOEA [None]
  - GASTROINTESTINAL DISORDER [None]
  - HAEMOGLOBIN DECREASED [None]
  - LOWER RESPIRATORY TRACT INFECTION [None]
  - NAUSEA [None]
